FAERS Safety Report 10044533 (Version 2)
Quarter: 2014Q2

REPORT INFORMATION
  Report Type: Report from Study
  Country: US (occurrence: US)
  Receive Date: 20140328
  Receipt Date: 20140506
  Transmission Date: 20141212
  Serious: Yes (Other)
  Sender: FDA-Public Use
  Company Number: PHEH2014US005906

PATIENT
  Sex: Male

DRUGS (2)
  1. TASIGNA [Suspect]
     Dosage: 300 MG, BID
     Route: 048
     Dates: start: 20130626, end: 20140201
  2. SPRYCEL [Concomitant]

REACTIONS (2)
  - Electrocardiogram QT prolonged [Unknown]
  - Drug intolerance [Unknown]
